FAERS Safety Report 12396682 (Version 1)
Quarter: 2016Q2

REPORT INFORMATION
  Report Type: Spontaneous
  Country: US (occurrence: None)
  Receive Date: 20160523
  Receipt Date: 20160523
  Transmission Date: 20160815
  Serious: Yes (Other)
  Sender: FDA-Public Use
  Company Number: None

PATIENT
  Age: 59 Year
  Sex: Female
  Weight: 63.05 kg

DRUGS (12)
  1. JANUMET [Suspect]
     Active Substance: METFORMIN HYDROCHLORIDE\SITAGLIPTIN PHOSPHATE
     Indication: DIABETES MELLITUS
     Route: 048
     Dates: start: 20160517, end: 20160521
  2. LOVASTATIN. [Concomitant]
     Active Substance: LOVASTATIN
  3. NEUROTIN [Concomitant]
     Active Substance: GABAPENTIN
  4. D + E VITS [Concomitant]
  5. GLYBURIDE. [Concomitant]
     Active Substance: GLYBURIDE
  6. JANUMET XR [Suspect]
     Active Substance: METFORMIN HYDROCHLORIDE\SITAGLIPTIN PHOSPHATE
     Indication: DIABETES MELLITUS
     Route: 048
     Dates: start: 20160512, end: 20160521
  7. C [Concomitant]
  8. SLEEP TABLETS [Concomitant]
  9. EXCEDRIN MIGAINE [Concomitant]
  10. TEA [Concomitant]
     Active Substance: TEA LEAF
  11. INVOKANA [Suspect]
     Active Substance: CANAGLIFLOZIN
  12. TYLENOL # 3 WITH CODIENE [Concomitant]

REACTIONS (8)
  - Dizziness [None]
  - Muscular weakness [None]
  - Malaise [None]
  - Hyperhidrosis [None]
  - Blood pressure increased [None]
  - Heart rate increased [None]
  - Asthenia [None]
  - Blood glucose increased [None]

NARRATIVE: CASE EVENT DATE: 20160520
